FAERS Safety Report 7243068-X (Version None)
Quarter: 2010Q4

REPORT INFORMATION
  Report Type: 
  Country: None (occurrence: None)
  Receive Date: 20101130
  Receipt Date: 20100121
  Transmission Date: 20110411
  Serious: Yes (Other)
  Sender: FDA-Public Use
  Company Number: 2010SP004901

PATIENT
  Age: 23 Year
  Sex: Female
  Weight: 97.5234 kg

DRUGS (2)
  1. NUVARING [Suspect]
     Indication: MIGRAINE
  2. NUVARING [Suspect]
     Indication: MUSCLE SPASMS

REACTIONS (4)
  - DEEP VEIN THROMBOSIS [None]
  - PAIN [None]
  - PULMONARY EMBOLISM [None]
  - THROMBOSIS [None]
